FAERS Safety Report 18578280 (Version 2)
Quarter: 2020Q4

REPORT INFORMATION
  Report Type: Spontaneous
  Country: US (occurrence: US)
  Receive Date: 20201204
  Receipt Date: 20201212
  Transmission Date: 20210114
  Serious: Yes (Life-Threatening, Hospitalization, Other)
  Sender: FDA-Public Use
  Company Number: US-DRREDDYS-USA/USA/20/0129691

PATIENT
  Age: 9 Month
  Sex: Female

DRUGS (6)
  1. TACROLIMUS. [Suspect]
     Active Substance: TACROLIMUS
     Indication: PRODUCT USED FOR UNKNOWN INDICATION
     Route: 048
  2. DEXMEDETOMIDINE. [Interacting]
     Active Substance: DEXMEDETOMIDINE
  3. FENTANYL CITRATE. [Concomitant]
     Active Substance: FENTANYL CITRATE
  4. DEXMEDETOMIDINE. [Interacting]
     Active Substance: DEXMEDETOMIDINE
     Indication: SEDATIVE THERAPY
     Dosage: INFUSION
     Route: 040
  5. FENTANYL CITRATE. [Concomitant]
     Active Substance: FENTANYL CITRATE
  6. FENTANYL CITRATE. [Concomitant]
     Active Substance: FENTANYL CITRATE
     Indication: SEDATIVE THERAPY
     Dosage: INFUSION
     Route: 041

REACTIONS (6)
  - Drug interaction [Recovered/Resolved]
  - Sinus bradycardia [Recovered/Resolved]
  - Agitation [Recovered/Resolved]
  - Sinus arrest [Recovered/Resolved]
  - Drug clearance decreased [Recovered/Resolved]
  - Drug level increased [Recovered/Resolved]
